FAERS Safety Report 7449018-5 (Version None)
Quarter: 2011Q2

REPORT INFORMATION
  Report Type: 
  Country: None (occurrence: None)
  Receive Date: 20110429
  Receipt Date: 20090522
  Transmission Date: 20111010
  Serious: Yes (Other)
  Sender: FDA-Public Use
  Company Number: DE-GENENTECH-317775

PATIENT
  Age: 85 Year
  Sex: Female

DRUGS (1)
  1. LUCENTIS [Suspect]
     Indication: MACULAR DEGENERATION
     Dosage: UNK
     Route: 031
     Dates: start: 20090130

REACTIONS (7)
  - HERPES ZOSTER [None]
  - EYE HAEMORRHAGE [None]
  - VISUAL ACUITY REDUCED [None]
  - TOOTH DISORDER [None]
  - INFLUENZA [None]
  - ABSCESS JAW [None]
  - MACULAR DEGENERATION [None]
